FAERS Safety Report 9784098 (Version 3)
Quarter: 2014Q1

REPORT INFORMATION
  Report Type: Spontaneous
  Country: JP (occurrence: JP)
  Receive Date: 20131226
  Receipt Date: 20140129
  Transmission Date: 20141002
  Serious: Yes (Other)
  Sender: FDA-Public Use
  Company Number: JP-PFIZER INC-2013365531

PATIENT
  Age: 86 Year
  Sex: Female
  Weight: 58 kg

DRUGS (14)
  1. LYRICA [Suspect]
     Indication: NEURALGIA
     Dosage: 75 MG, 1X/DAY BEFORE BEDTIME
     Route: 048
     Dates: start: 20131024, end: 20131218
  2. NICARPINE [Concomitant]
     Indication: HYPERTENSION
     Dosage: 20 MG, 2X/DAY
     Route: 048
  3. FERROMIA [Concomitant]
     Indication: ANAEMIA
     Dosage: 50 MG, 2X/DAY
     Route: 048
  4. ATORVASTATIN [Concomitant]
     Indication: HYPERLIPIDAEMIA
     Dosage: 5 MG, 1X/DAY
     Route: 048
  5. PARIET [Concomitant]
     Indication: GASTROOESOPHAGEAL REFLUX DISEASE
     Dosage: 10 MG, 1X/DAY
     Route: 048
  6. ALLOZYM [Concomitant]
     Indication: HYPERURICAEMIA
     Dosage: 100 MG, 1X/DAY
     Route: 048
  7. FLUITRAN [Concomitant]
     Indication: HYPERTENSION
     Dosage: 1 MG, 1X/DAY
     Route: 048
  8. OLMETEC [Concomitant]
     Indication: HYPERTENSION
     Dosage: 40 MG, 1X/DAY
     Route: 048
  9. GRANDAXIN [Concomitant]
     Indication: AUTONOMIC NERVOUS SYSTEM IMBALANCE
     Dosage: 50 MG, 3X/DAY
     Route: 048
  10. MIYA BM [Concomitant]
     Indication: CONSTIPATION
     Dosage: 1 G, 3X/DAY
     Route: 048
  11. DOXAZOSIN [Concomitant]
     Indication: HYPERTENSION
     Dosage: 1 MG, 1X/DAY
     Route: 048
  12. KAYEXALATE [Concomitant]
     Indication: HYPERKALAEMIA
     Dosage: 3.27 G, 2X/DAY
     Route: 048
  13. AMLODIPINE [Concomitant]
     Indication: HYPERTENSION
     Dosage: 5 MG, 1X/DAY
     Route: 048
  14. NESP [Concomitant]
     Indication: ANAEMIA
     Dosage: 120 UG, WEEKLY
     Route: 058
     Dates: start: 20120524

REACTIONS (5)
  - Weight increased [Recovered/Resolved]
  - Oedema peripheral [Recovered/Resolved]
  - Eyelid oedema [Recovered/Resolved]
  - Somnolence [Recovered/Resolved]
  - Dizziness [Recovered/Resolved]
